FAERS Safety Report 5004190-1 (Version None)
Quarter: 2006Q2

REPORT INFORMATION
  Report Type: 
  Country: None (occurrence: None)
  Receive Date: 20060517
  Receipt Date: 20060508
  Transmission Date: 20061013
  Serious: Yes (Other)
  Sender: FDA-Public Use
  Company Number: PHBS2006IN06829

PATIENT
  Age: 71 Year
  Sex: Female

DRUGS (5)
  1. AMLODIPINE [Concomitant]
  2. EPTOIN [Concomitant]
     Dosage: 100 MG/DAY
  3. ASPIRIN [Concomitant]
  4. MULTIVITAMIN [Concomitant]
  5. VOVERAN [Suspect]
     Indication: OSTEOARTHRITIS
     Route: 030

REACTIONS (4)
  - BRONCHOSPASM [None]
  - PRURITUS GENERALISED [None]
  - RASH GENERALISED [None]
  - URTICARIA [None]
